FAERS Safety Report 8215476-1 (Version None)
Quarter: 2012Q1

REPORT INFORMATION
  Report Type: 
  Country: None (occurrence: None)
  Receive Date: 20120316
  Receipt Date: 20120313
  Transmission Date: 20120608
  Serious: Yes (Hospitalization)
  Sender: FDA-Public Use
  Company Number: BR-BAYER-2012-024726

PATIENT
  Sex: Male

DRUGS (2)
  1. NEXAVAR [Suspect]
     Dosage: DAILY DOSE 600 MG
     Route: 048
  2. NEXAVAR [Suspect]
     Indication: HEPATIC NEOPLASM MALIGNANT
     Dosage: DAILY DOSE 800 MG
     Route: 048

REACTIONS (4)
  - CHOLURIA [None]
  - FAECES PALE [None]
  - JAUNDICE [None]
  - PALMAR-PLANTAR ERYTHRODYSAESTHESIA SYNDROME [None]
